FAERS Safety Report 22203539 (Version 1)
Quarter: 2023Q2

REPORT INFORMATION
  Report Type: Other
  Country: US (occurrence: None)
  Receive Date: 20230412
  Receipt Date: 20230412
  Transmission Date: 20230722
  Serious: Yes (Hospitalization, Other)
  Sender: FDA-Public Use
  Company Number: US-ROCHE-3326136

PATIENT
  Age: 70 Year
  Sex: Male
  Weight: 81.720 kg

DRUGS (3)
  1. OCREVUS [Suspect]
     Active Substance: OCRELIZUMAB
     Indication: Primary progressive multiple sclerosis
     Dosage: NEXT 600 DOSE SCHEDULED FOR /SEP/2023
     Route: 042
     Dates: start: 2017
  2. RITUXIMAB [Concomitant]
     Active Substance: RITUXIMAB
     Route: 065
  3. DALFAMPRIDINE [Concomitant]
     Active Substance: DALFAMPRIDINE

REACTIONS (6)
  - COVID-19 [Recovered/Resolved]
  - Pneumonia [Recovered/Resolved]
  - Hemiparesis [Unknown]
  - Drug ineffective [Unknown]
  - Fatigue [Recovered/Resolved]
  - Back pain [Not Recovered/Not Resolved]

NARRATIVE: CASE EVENT DATE: 20180101
